FAERS Safety Report 9645772 (Version 1)
Quarter: 2013Q4

REPORT INFORMATION
  Report Type: Report from Study
  Country: DE (occurrence: DE)
  Receive Date: 20131025
  Receipt Date: 20131025
  Transmission Date: 20140711
  Serious: Yes (Hospitalization, Other)
  Sender: FDA-Public Use
  Company Number: DE-ABBVIE-13P-062-1159652-00

PATIENT
  Age: 39 Year
  Sex: Male
  Weight: 120 kg

DRUGS (2)
  1. HUMIRA [Suspect]
     Indication: PRODUCT USED FOR UNKNOWN INDICATION
     Route: 058
     Dates: start: 20130821, end: 20130821
  2. HUMIRA [Suspect]
     Route: 058
     Dates: start: 20130828, end: 20130828

REACTIONS (3)
  - Diabetes mellitus [Unknown]
  - Pancreatitis [Recovering/Resolving]
  - Gastritis [Unknown]
